FAERS Safety Report 11669208 (Version 1)
Quarter: 2015Q4

REPORT INFORMATION
  Report Type: Spontaneous
  Country: GB (occurrence: GB)
  Receive Date: 20151027
  Receipt Date: 20151027
  Transmission Date: 20160304
  Serious: Yes (Hospitalization, Disabling, Congenital Anomaly, Other)
  Sender: FDA-Public Use
  Company Number: GB-ABBVIE-15P-167-1489128-00

PATIENT
  Sex: Female

DRUGS (1)
  1. EPILIM [Suspect]
     Active Substance: VALPROATE SODIUM
     Indication: MATERNAL EXPOSURE TIMING UNSPECIFIED
     Route: 064

REACTIONS (10)
  - Strabismus [Unknown]
  - Hypermobility syndrome [Unknown]
  - Cleft palate [Recovered/Resolved with Sequelae]
  - Atrial septal defect [Recovered/Resolved with Sequelae]
  - Hypertelorism of orbit [Unknown]
  - Foetal exposure during pregnancy [Unknown]
  - Autism spectrum disorder [Recovered/Resolved with Sequelae]
  - Developmental delay [Recovered/Resolved with Sequelae]
  - Hypoacusis [Unknown]
  - Learning disability [Recovered/Resolved with Sequelae]

NARRATIVE: CASE EVENT DATE: 20090508
